FAERS Safety Report 8509415 (Version 4)
Quarter: 2014Q2

REPORT INFORMATION
  Report Type: Report from Study
  Country: FR (occurrence: FR)
  Receive Date: 20120413
  Receipt Date: 20140401
  Transmission Date: 20141212
  Serious: Yes (Life-Threatening, Hospitalization, Disabling, Other)
  Sender: FDA-Public Use
  Company Number: FR-BIOGENIDEC-2012BI012264

PATIENT
  Age: 45 Year
  Sex: Male

DRUGS (17)
  1. TYSABRI [Suspect]
     Indication: MULTIPLE SCLEROSIS
     Route: 042
     Dates: start: 20080602, end: 20110817
  2. PLAVIX [Concomitant]
     Indication: ANTICOAGULANT THERAPY
  3. PLAVIX [Concomitant]
     Indication: ANTICOAGULANT THERAPY
  4. TAHOR [Concomitant]
     Indication: HYPERCHOLESTEROLAEMIA
     Route: 048
  5. BI-TILDIEM [Concomitant]
     Indication: HYPERTENSION
  6. BI-TILDIEM [Concomitant]
     Indication: HYPERTENSION
  7. FORLAX [Concomitant]
     Indication: LAXATIVE SUPPORTIVE CARE
  8. LIORESAL [Concomitant]
     Indication: MUSCLE RELAXANT THERAPY
  9. LIORESAL [Concomitant]
     Indication: MUSCLE RELAXANT THERAPY
  10. XANAX [Concomitant]
     Indication: ANXIETY
  11. XANAX [Concomitant]
     Indication: ANXIETY
     Route: 048
  12. LOVENOX [Concomitant]
     Indication: THROMBOSIS PROPHYLAXIS
     Route: 058
     Dates: start: 201112
  13. CERIS [Concomitant]
  14. MOPRAL [Concomitant]
  15. JOSIR LP [Concomitant]
  16. BETAFERON [Concomitant]
  17. STEROIDS [Concomitant]
     Indication: MULTIPLE SCLEROSIS RELAPSE

REACTIONS (3)
  - Multiple sclerosis relapse [Not Recovered/Not Resolved]
  - Lobar pneumonia [Recovered/Resolved]
  - Coma [Recovered/Resolved]
